FAERS Safety Report 6505680-2 (Version None)
Quarter: 2009Q4

REPORT INFORMATION
  Report Type: 
  Country: None (occurrence: None)
  Receive Date: 20091218
  Receipt Date: 20091211
  Transmission Date: 20100525
  Serious: Yes (Other)
  Sender: FDA-Public Use
  Company Number: A0835657A

PATIENT
  Age: 44 Year
  Sex: Male

DRUGS (2)
  1. REQUIP [Suspect]
     Indication: PARKINSON'S DISEASE
     Route: 048
  2. MIRAPEX [Suspect]

REACTIONS (1)
  - DRUG DEPENDENCE [None]
